FAERS Safety Report 19269246 (Version 1)
Quarter: 2021Q2

REPORT INFORMATION
  Report Type: Spontaneous
  Country: US (occurrence: US)
  Receive Date: 20210518
  Receipt Date: 20210518
  Transmission Date: 20210717
  Serious: No
  Sender: FDA-Public Use
  Company Number: None

PATIENT
  Age: 46 Year
  Sex: Female
  Weight: 81 kg

DRUGS (2)
  1. METHYLPREDNISOLONE. [Suspect]
     Active Substance: METHYLPREDNISOLONE
     Indication: NASAL CONGESTION
     Dosage: ?          OTHER FREQUENCY:AS DIRECTED ON BOX;?
     Route: 048
     Dates: start: 20210412, end: 20210417
  2. METHYLPREDNISOLONE. [Suspect]
     Active Substance: METHYLPREDNISOLONE
     Indication: COVID-19
     Dosage: ?          OTHER FREQUENCY:AS DIRECTED ON BOX;?
     Route: 048
     Dates: start: 20210412, end: 20210417

REACTIONS (1)
  - Palpitations [None]

NARRATIVE: CASE EVENT DATE: 20210412
